FAERS Safety Report 6174395-5 (Version None)
Quarter: 2009Q2

REPORT INFORMATION
  Report Type: 
  Country: None (occurrence: None)
  Receive Date: 20090430
  Receipt Date: 20090425
  Transmission Date: 20091009
  Serious: Yes (Other)
  Sender: FDA-Public Use
  Company Number: DZ-PFIZER INC-2009200405

PATIENT

DRUGS (3)
  1. CELECOXIB [Suspect]
     Indication: OSTEOARTHRITIS
     Dosage: 200 MG, 2X/DAY
     Route: 048
  2. NEUROVIT [Concomitant]
  3. PARACETAMOL [Concomitant]

REACTIONS (2)
  - HALLUCINATION [None]
  - SOMNOLENCE [None]
